FAERS Safety Report 16650013 (Version 1)
Quarter: 2019Q3

REPORT INFORMATION
  Report Type: Spontaneous
  Country: DE (occurrence: DE)
  Receive Date: 20190731
  Receipt Date: 20190731
  Transmission Date: 20191004
  Serious: Yes (Life-Threatening, Hospitalization)
  Sender: FDA-Public Use
  Company Number: DE-SUN PHARMACEUTICAL INDUSTRIES LTD-2019RR-215715

PATIENT
  Age: 59 Year
  Sex: Female
  Weight: 48 kg

DRUGS (14)
  1. ATORVASTATIN AL 40MG [Concomitant]
     Indication: PRODUCT USED FOR UNKNOWN INDICATION
     Dosage: 40 MG, 0-0-1-0, TABLETTEN ()
     Route: 048
  2. RAMIPRIL AAA 5MG [Concomitant]
     Indication: PRODUCT USED FOR UNKNOWN INDICATION
     Dosage: 5 MG, 1-0-1-0, TABLETTEN ()
     Route: 048
  3. BISOPROLOL ABZ [Concomitant]
     Active Substance: BISOPROLOL
     Indication: PRODUCT USED FOR UNKNOWN INDICATION
     Dosage: 2.5 MG, 1-0-1-0, TABLETTEN ()
     Route: 048
  4. MOXONIDINE AAA-PHARMA 0,3MG [Concomitant]
     Indication: PRODUCT USED FOR UNKNOWN INDICATION
     Dosage: 0.3 MG, 1-0-1-0, TABLETTEN ()
     Route: 048
  5. BICANORM [Concomitant]
     Active Substance: SODIUM BICARBONATE
     Indication: PRODUCT USED FOR UNKNOWN INDICATION
     Dosage: 1 G, 1-1-1-0, TABLETTEN ()
     Route: 048
  6. CATAPRESAN 150 [Concomitant]
     Indication: PRODUCT USED FOR UNKNOWN INDICATION
     Dosage: 0.15 MG, 1-0-1-0, TABLETTEN ()
     Route: 048
  7. ADVAGRAF 1MG [Suspect]
     Active Substance: TACROLIMUS
     Indication: PRODUCT USED FOR UNKNOWN INDICATION
     Dosage: 1 MG, 2-0-0-0, RETARD-KAPSELN ()
     Route: 048
  8. FOLSAURE ABZ [Concomitant]
     Indication: PRODUCT USED FOR UNKNOWN INDICATION
     Dosage: 5 MG, 1-0-0-0, TABLETTEN ()
     Route: 048
  9. PREDNISOLON [Concomitant]
     Active Substance: PREDNISOLONE
     Indication: PRODUCT USED FOR UNKNOWN INDICATION
     Dosage: 5 MG, 1-0-0-0, TABLETTEN ()
     Route: 048
  10. CELLCEPT [Concomitant]
     Active Substance: MYCOPHENOLATE MOFETIL\MYCOPHENOLATE MOFETIL HYDROCHLORIDE
     Indication: PRODUCT USED FOR UNKNOWN INDICATION
     Dosage: 500 MG, 1-1-1-0, TABLETTEN ()
     Route: 048
  11. CLARITHROMYCIN. [Suspect]
     Active Substance: CLARITHROMYCIN
     Indication: PRODUCT USED FOR UNKNOWN INDICATION
     Dosage: 250 MG, 0-0-0-0, TABLETTEN ()
     Route: 048
  12. HCT AAA 12,5 MG [Concomitant]
     Indication: PRODUCT USED FOR UNKNOWN INDICATION
     Dosage: 12.5 MG, 1-0-0-0, TABLETTEN ()
     Route: 048
  13. NEPRESOL [Concomitant]
     Indication: PRODUCT USED FOR UNKNOWN INDICATION
     Dosage: 25 MG, 1-0-1-0, TABLETTEN ()
     Route: 048
  14. FUROSEMID ABZ [Concomitant]
     Indication: PRODUCT USED FOR UNKNOWN INDICATION
     Dosage: 40 MG, 2-1-0-0, TABLETTEN ()
     Route: 048

REACTIONS (10)
  - Hypertension [Unknown]
  - Blood pressure abnormal [Unknown]
  - Product prescribing error [Unknown]
  - Dyspnoea [Unknown]
  - Drug level increased [Unknown]
  - Therapeutic drug monitoring analysis not performed [Unknown]
  - Agitation [Unknown]
  - Nausea [Unknown]
  - Renal failure [Unknown]
  - Vomiting [Unknown]
